FAERS Safety Report 20510027 (Version 2)
Quarter: 2022Q1

REPORT INFORMATION
  Report Type: Spontaneous
  Country: US (occurrence: US)
  Receive Date: 20220224
  Receipt Date: 20220307
  Transmission Date: 20220423
  Serious: No
  Sender: FDA-Public Use
  Company Number: US-drreddys-SPO/USA/22/0146905

PATIENT
  Age: 14 Year
  Sex: Female

DRUGS (3)
  1. ZENATANE [Suspect]
     Active Substance: ISOTRETINOIN
     Indication: Product used for unknown indication
     Dosage: RMA ISSUE DATE: 15 SEPTEMBER 2021, 04:53:35 PM, 15 OCTOBER 2021 12:56:58 PM
  2. ZENATANE [Suspect]
     Active Substance: ISOTRETINOIN
     Dosage: RMA ISSUE DATE: 11 NOVEMBER 2021 07:18:36 PM, 08 DECEMBER 2021 07:18:36 PM
     Dates: start: 20210915, end: 20220110
  3. LARISSIA BCP [Concomitant]
     Indication: Product used for unknown indication
     Dates: start: 20210812

REACTIONS (3)
  - Dry skin [Unknown]
  - Chapped lips [Unknown]
  - Pregnancy test false positive [Unknown]

NARRATIVE: CASE EVENT DATE: 20211101
